FAERS Safety Report 4839361-8 (Version None)
Quarter: 2005Q4

REPORT INFORMATION
  Report Type: 
  Country: None (occurrence: None)
  Receive Date: 20051129
  Receipt Date: 20050203
  Transmission Date: 20060501
  Serious: No
  Sender: FDA-Public Use
  Company Number: US-GLAXOSMITHKLINE-A0543743A

PATIENT
  Age: 60 Year
  Sex: Female

DRUGS (24)
  1. WELLBUTRIN SR [Suspect]
     Indication: DEPRESSION
     Dosage: 150MG TWICE PER DAY
     Route: 048
     Dates: start: 20030601, end: 20030901
  2. WELLBUTRIN XL [Suspect]
     Indication: DEPRESSION
     Dosage: 150MG PER DAY
     Route: 048
     Dates: start: 20030901
  3. B-12 [Concomitant]
  4. FLONASE [Concomitant]
  5. MAALOX FAST BLOCKER [Concomitant]
  6. FLUOROMETHOLONE EYE DROPS [Concomitant]
  7. PRILOSEC [Concomitant]
  8. HYDROCHLOROTHIAZIDE [Concomitant]
  9. FOLIC ACID [Concomitant]
  10. CALCIUM GLUCONATE [Concomitant]
  11. CALCIUM + VITAMIN D [Concomitant]
  12. VITAMIN E [Concomitant]
  13. FISH OIL [Concomitant]
  14. B-6 [Concomitant]
  15. THERA TEARS [Concomitant]
  16. THERA TEARS [Concomitant]
     Route: 061
  17. VALERIUM [Concomitant]
  18. MORPHINE SULFATE [Concomitant]
  19. AMBIEN [Concomitant]
  20. RISPERDAL [Concomitant]
  21. DARVOCET [Concomitant]
  22. ERY-TAB [Concomitant]
  23. OXYCODONE [Concomitant]
  24. ZANAFLEX [Concomitant]

REACTIONS (1)
  - SLEEP APNOEA SYNDROME [None]
